FAERS Safety Report 10468174 (Version 3)
Quarter: 2014Q4

REPORT INFORMATION
  Report Type: Report from Study
  Country: PR (occurrence: PR)
  Receive Date: 20140922
  Receipt Date: 20141011
  Transmission Date: 20150528
  Serious: Yes (Hospitalization, Other)
  Sender: FDA-Public Use
  Company Number: PR-ABBVIE-14K-131-1286288-00

PATIENT
  Age: 62 Year
  Sex: Female
  Weight: 85.81 kg

DRUGS (10)
  1. HUMIRA [Suspect]
     Active Substance: ADALIMUMAB
     Indication: PSORIATIC ARTHROPATHY
     Route: 058
     Dates: start: 20140903, end: 20140917
  2. KLONOPIN [Concomitant]
     Active Substance: CLONAZEPAM
     Indication: ANXIETY
     Dosage: 1 AT BEDTIME
     Route: 048
  3. DIOVAN [Concomitant]
     Active Substance: VALSARTAN
     Indication: HYPERTENSION
     Route: 048
  4. FLURAZEPAM [Concomitant]
     Active Substance: FLURAZEPAM\FLURAZEPAM HYDROCHLORIDE
     Indication: INSOMNIA
     Dosage: 1 AT BEDTIME
     Route: 048
  5. JANUMET [Concomitant]
     Active Substance: METFORMIN HYDROCHLORIDE\SITAGLIPTIN PHOSPHATE
     Indication: BLOOD GLUCOSE INCREASED
     Route: 048
  6. EXFORGE [Concomitant]
     Active Substance: AMLODIPINE BESYLATE\VALSARTAN
     Indication: HYPERTENSION
     Dosage: 1 EVERY MORNING
     Route: 048
  7. ASACOL [Concomitant]
     Active Substance: MESALAMINE
     Indication: BLOOD CHOLESTEROL INCREASED
  8. ZANTAC [Concomitant]
     Active Substance: RANITIDINE HYDROCHLORIDE
     Indication: GASTROOESOPHAGEAL REFLUX DISEASE
     Dosage: 1 AT BEDTIME
     Route: 048
  9. ASACOL [Concomitant]
     Active Substance: MESALAMINE
     Indication: BLOOD TRIGLYCERIDES INCREASED
     Route: 048
  10. NEURONTIN [Concomitant]
     Active Substance: GABAPENTIN
     Indication: NEUROPATHY PERIPHERAL
     Route: 048

REACTIONS (20)
  - Loss of consciousness [Recovered/Resolved]
  - Pneumonia [Unknown]
  - Blood glucose increased [Recovered/Resolved]
  - Disorientation [Recovered/Resolved]
  - Joint injury [Recovering/Resolving]
  - Erythema [Unknown]
  - Liver disorder [Recovered/Resolved]
  - Hepatic pain [Recovered/Resolved]
  - Respiratory distress [Unknown]
  - Cardiac arrest [Recovered/Resolved]
  - Pleural effusion [Unknown]
  - Fatigue [Recovered/Resolved]
  - Blood pressure increased [Unknown]
  - Headache [Recovered/Resolved]
  - Malaise [Unknown]
  - Dyspnoea [Recovered/Resolved]
  - Rash [Unknown]
  - Fatigue [Unknown]
  - Cardiac failure [Recovered/Resolved]
  - Hyperhidrosis [Recovered/Resolved]

NARRATIVE: CASE EVENT DATE: 201409
